FAERS Safety Report 11630018 (Version 1)
Quarter: 2015Q4

REPORT INFORMATION
  Report Type: Spontaneous
  Country: US (occurrence: US)
  Receive Date: 20151014
  Receipt Date: 20151014
  Transmission Date: 20160304
  Serious: No
  Sender: FDA-Public Use
  Company Number: US-INDIVIOR-RB-079512-2015

PATIENT
  Age: 44 Year
  Sex: Male

DRUGS (2)
  1. SUBOXONE [Suspect]
     Active Substance: BUPRENORPHINE HYDROCHLORIDE\NALOXONE HYDROCHLORIDE
     Indication: DRUG DEPENDENCE
     Dosage: 8 MG, QD (3 DAYS)
     Route: 060
     Dates: start: 201503, end: 201503
  2. SUBOXONE [Suspect]
     Active Substance: BUPRENORPHINE HYDROCHLORIDE\NALOXONE HYDROCHLORIDE
     Dosage: UNK, (CUTTING THE FILM TO ACCOMPLISH LOWER DOSES AS PART OF A TAPER (ABOUT TWO AND A HALF WEEKS))
     Route: 060
     Dates: start: 201503, end: 201504

REACTIONS (8)
  - Depression [Recovering/Resolving]
  - Euphoric mood [Recovered/Resolved]
  - Muscle twitching [Recovered/Resolved]
  - Crying [Recovered/Resolved]
  - Intentional underdose [Recovered/Resolved]
  - Drug withdrawal syndrome [Recovered/Resolved]
  - Product preparation error [Recovered/Resolved]
  - Chest pain [Recovered/Resolved]

NARRATIVE: CASE EVENT DATE: 201503
